FAERS Safety Report 5106723-3 (Version None)
Quarter: 2006Q3

REPORT INFORMATION
  Report Type: 
  Country: None (occurrence: None)
  Receive Date: 20060913
  Receipt Date: 20060830
  Transmission Date: 20061208
  Serious: Yes (Hospitalization)
  Sender: FDA-Public Use
  Company Number: MEDI-0004300

PATIENT
  Age: 1 Month
  Weight: 2.25 kg

DRUGS (3)
  1. SYNAGIS [Suspect]
     Indication: ANTIVIRAL PROPHYLAXIS
     Dosage: 33 MG, 1 IN 30 D, INTRAMUSCULAR, SEE IMAGE
     Route: 030
     Dates: start: 20051020, end: 20051115
  2. SYNAGIS [Suspect]
     Indication: ANTIVIRAL PROPHYLAXIS
     Dosage: 33 MG, 1 IN 30 D, INTRAMUSCULAR, SEE IMAGE
     Route: 030
     Dates: start: 20051020
  3. SYNAGIS [Suspect]
     Indication: ANTIVIRAL PROPHYLAXIS
     Dosage: 33 MG, 1 IN 30 D, INTRAMUSCULAR, SEE IMAGE
     Route: 030
     Dates: start: 20051215

REACTIONS (3)
  - BRADYCARDIA [None]
  - MALAISE [None]
  - OXYGEN SATURATION DECREASED [None]
